FAERS Safety Report 8096446-3 (Version None)
Quarter: 2012Q1

REPORT INFORMATION
  Report Type: 
  Country: None (occurrence: None)
  Receive Date: 20120129
  Receipt Date: 20111213
  Transmission Date: 20120608
  Serious: No
  Sender: FDA-Public Use
  Company Number: US-ABBOTT-11P-163-0882970-00

PATIENT
  Age: 26 Year
  Sex: Female

DRUGS (1)
  1. HUMIRA [Suspect]
     Indication: INJURY ASSOCIATED WITH DEVICE
     Dates: start: 20111213, end: 20111213

REACTIONS (3)
  - INJECTION SITE SWELLING [None]
  - INJURY ASSOCIATED WITH DEVICE [None]
  - WRONG DRUG ADMINISTERED [None]
